FAERS Safety Report 4708624-9 (Version None)
Quarter: 2005Q3

REPORT INFORMATION
  Report Type: 
  Country: None (occurrence: None)
  Receive Date: 20050706
  Receipt Date: 20050624
  Transmission Date: 20060218
  Serious: Yes (Hospitalization)
  Sender: FDA-Public Use
  Company Number: A-US2005-08989

PATIENT
  Age: 76 Year
  Sex: Male

DRUGS (15)
  1. TRACLEER [Suspect]
     Indication: PULMONARY HYPERTENSION
     Dosage: SEE IMAGE
     Route: 048
     Dates: start: 20050401, end: 20040501
  2. TRACLEER [Suspect]
     Indication: PULMONARY HYPERTENSION
     Dosage: SEE IMAGE
     Route: 048
     Dates: start: 20040301, end: 20050112
  3. TRACLEER [Suspect]
     Indication: PULMONARY HYPERTENSION
     Dosage: SEE IMAGE
     Route: 048
     Dates: start: 20050101, end: 20050131
  4. LIPITOR [Suspect]
  5. XENICAL [Concomitant]
  6. CARDURA [Concomitant]
  7. ALLOPURINOL [Concomitant]
  8. NORVASC [Concomitant]
  9. TOPROL-XL [Concomitant]
  10. MIRAPEX [Concomitant]
  11. COUMADIN [Concomitant]
  12. LASIX [Concomitant]
  13. ALDACTONE [Concomitant]
  14. QUININE SULFATE [Concomitant]
  15. GLUCOSAMINE (GLUCOSAMINE) [Concomitant]

REACTIONS (9)
  - ALANINE AMINOTRANSFERASE INCREASED [None]
  - ASPARTATE AMINOTRANSFERASE INCREASED [None]
  - ASTHENIA [None]
  - BLOOD ALKALINE PHOSPHATASE INCREASED [None]
  - BLOOD BILIRUBIN INCREASED [None]
  - CHOLESTASIS [None]
  - HEPATITIS ACUTE [None]
  - LUNG NEOPLASM [None]
  - NAUSEA [None]
